FAERS Safety Report 6360495-3 (Version None)
Quarter: 2009Q3

REPORT INFORMATION
  Report Type: 
  Country: None (occurrence: None)
  Receive Date: 20090917
  Receipt Date: 20090904
  Transmission Date: 20100115
  Serious: Yes (Other)
  Sender: FDA-Public Use
  Company Number: IN-MERCK-0909USA01939

PATIENT
  Age: 42 Year
  Sex: Female
  Weight: 70 kg

DRUGS (2)
  1. JANUMET [Suspect]
     Indication: TYPE 2 DIABETES MELLITUS
     Route: 048
     Dates: start: 20090801, end: 20090902
  2. METFORMIN [Concomitant]
     Route: 065

REACTIONS (2)
  - PRURITUS [None]
  - RASH [None]
